FAERS Safety Report 9440002 (Version 1)
Quarter: 2013Q3

REPORT INFORMATION
  Report Type: Spontaneous
  Country: US (occurrence: US)
  Receive Date: 20130805
  Receipt Date: 20130805
  Transmission Date: 20140515
  Serious: Yes (Other)
  Sender: FDA-Public Use
  Company Number: US-PFIZER INC-2013226253

PATIENT
  Age: 67 Year
  Sex: Female
  Weight: 64.4 kg

DRUGS (5)
  1. SERTRALINE HCL [Suspect]
     Indication: DEPRESSION
     Dosage: 12.5 MG, UNK
     Route: 048
     Dates: start: 201307, end: 201307
  2. SERTRALINE HCL [Suspect]
     Indication: ANXIETY
     Dosage: 25 MG, UNK
     Dates: start: 201307
  3. ATENOLOL [Concomitant]
     Indication: HYPERTENSION
     Dosage: UNK, DAILY
  4. METHOTREXATE [Concomitant]
     Indication: RHEUMATOID ARTHRITIS
     Dosage: UNK, WEEKLY
  5. ENBREL [Concomitant]
     Indication: RHEUMATOID ARTHRITIS
     Dosage: 50 MG, WEEKLY

REACTIONS (18)
  - Convulsion [Not Recovered/Not Resolved]
  - Labile blood pressure [Unknown]
  - Tachycardia [Unknown]
  - Headache [Not Recovered/Not Resolved]
  - Visual impairment [Not Recovered/Not Resolved]
  - Tremor [Not Recovered/Not Resolved]
  - Arthralgia [Not Recovered/Not Resolved]
  - Myalgia [Not Recovered/Not Resolved]
  - Malaise [Not Recovered/Not Resolved]
  - Feeling abnormal [Not Recovered/Not Resolved]
  - Insomnia [Not Recovered/Not Resolved]
  - Nausea [Not Recovered/Not Resolved]
  - Dry mouth [Not Recovered/Not Resolved]
  - Dizziness [Not Recovered/Not Resolved]
  - Head titubation [Not Recovered/Not Resolved]
  - Pyrexia [Unknown]
  - Constipation [Unknown]
  - Urine output decreased [Unknown]
